FAERS Safety Report 7393470-0 (Version None)
Quarter: 2011Q2

REPORT INFORMATION
  Report Type: 
  Country: None (occurrence: None)
  Receive Date: 20110405
  Receipt Date: 20100726
  Transmission Date: 20111010
  Serious: Yes (Other)
  Sender: FDA-Public Use
  Company Number: US-BAYER-201013267NA

PATIENT
  Sex: Female
  Weight: 49.091 kg

DRUGS (7)
  1. YAZ [Suspect]
     Indication: PRODUCT USED FOR UNKNOWN INDICATION
     Route: 048
     Dates: start: 20000101
  2. CLINDAMYCIN PHOSPHATE [Concomitant]
     Route: 061
  3. CITALOPRAM [Concomitant]
     Dosage: 20 MG/24HR, UNK
     Route: 048
  4. YASMIN [Suspect]
     Indication: PRODUCT USED FOR UNKNOWN INDICATION
     Route: 048
     Dates: start: 20000101
  5. TRETINOIN [Concomitant]
     Route: 061
  6. DOXYCYCLINE [Concomitant]
     Dosage: 100 MG, TID
     Route: 048
  7. MINOCYCLINE [Concomitant]
     Dosage: 90 MG, DAILY
     Route: 048

REACTIONS (1)
  - GALLBLADDER DISORDER [None]
